FAERS Safety Report 6740287-3 (Version None)
Quarter: 2010Q2

REPORT INFORMATION
  Report Type: 
  Country: None (occurrence: None)
  Receive Date: 20100525
  Receipt Date: 20100519
  Transmission Date: 20101027
  Serious: Yes (Other)
  Sender: FDA-Public Use
  Company Number: US-MERCK-0904USA01370

PATIENT
  Age: 65 Year
  Sex: Female

DRUGS (6)
  1. FOSAMAX [Suspect]
     Indication: OSTEOPOROSIS PROPHYLAXIS
     Route: 048
     Dates: start: 20040421, end: 20060201
  2. FOSAMAX [Suspect]
     Route: 048
     Dates: start: 20060601, end: 20070409
  3. FOSAMAX [Suspect]
     Indication: OSTEOPOROSIS
     Route: 048
     Dates: start: 20040421, end: 20060201
  4. FOSAMAX [Suspect]
     Route: 048
     Dates: start: 20060601, end: 20070409
  5. FOSAMAX PLUS D [Suspect]
     Indication: OSTEOPOROSIS PROPHYLAXIS
     Route: 048
     Dates: start: 20070410, end: 20070625
  6. FOSAMAX PLUS D [Suspect]
     Indication: OSTEOPOROSIS
     Route: 048
     Dates: start: 20070410, end: 20070625

REACTIONS (11)
  - BACK PAIN [None]
  - BALANCE DISORDER [None]
  - BONE DENSITY DECREASED [None]
  - BONE DENSITY INCREASED [None]
  - CONCUSSION [None]
  - FACE INJURY [None]
  - FALL [None]
  - HEAD INJURY [None]
  - OSTEOMYELITIS [None]
  - OSTEONECROSIS OF JAW [None]
  - SURGERY [None]
